FAERS Safety Report 17701499 (Version 4)
Quarter: 2021Q2

REPORT INFORMATION
  Report Type: Spontaneous
  Country: US (occurrence: US)
  Receive Date: 20200424
  Receipt Date: 20210428
  Transmission Date: 20210716
  Serious: Yes (Hospitalization, Other)
  Sender: FDA-Public Use
  Company Number: US-ASTRAZENECA-2020SE54025

PATIENT
  Age: 25836 Day
  Sex: Male
  Weight: 132.4 kg

DRUGS (66)
  1. GENTAMICIN. [Concomitant]
     Active Substance: GENTAMICIN
     Indication: INFECTION
     Dates: start: 201908
  2. LIPITOR [Concomitant]
     Active Substance: ATORVASTATIN CALCIUM
     Indication: BLOOD CHOLESTEROL ABNORMAL
     Dates: start: 200707, end: 201303
  3. AMITRIPTYLINE [Concomitant]
     Active Substance: AMITRIPTYLINE
     Indication: DEPRESSION
     Dates: start: 2003, end: 2012
  4. ATENOLOL. [Concomitant]
     Active Substance: ATENOLOL
  5. CYMBALTA [Concomitant]
     Active Substance: DULOXETINE HYDROCHLORIDE
  6. BENZONATATE. [Concomitant]
     Active Substance: BENZONATATE
  7. VENLAFAXINE [Concomitant]
     Active Substance: VENLAFAXINE HYDROCHLORIDE
  8. ZOCOR [Concomitant]
     Active Substance: SIMVASTATIN
  9. VELPHORO [Concomitant]
     Active Substance: SUCROFERRIC OXYHYDROXIDE
  10. PROTONIX [Suspect]
     Active Substance: PANTOPRAZOLE SODIUM
     Route: 065
     Dates: start: 200701, end: 201701
  11. FAMOTIDINE. [Concomitant]
     Active Substance: FAMOTIDINE
     Dates: start: 2017
  12. FUROSEMIDE. [Concomitant]
     Active Substance: FUROSEMIDE
     Indication: OEDEMA
     Dates: start: 200307, end: 201306
  13. TUMS [Concomitant]
     Active Substance: CALCIUM CARBONATE
     Dates: start: 2003, end: 2007
  14. CIALIS [Concomitant]
     Active Substance: TADALAFIL
  15. RELION [Concomitant]
  16. SMZ/TMP [Concomitant]
     Active Substance: SULFAMETHOXAZOLE\TRIMETHOPRIM
  17. ALLEGRA [Concomitant]
     Active Substance: FEXOFENADINE HYDROCHLORIDE
  18. NAPROXEN. [Concomitant]
     Active Substance: NAPROXEN
  19. PLAVIX [Concomitant]
     Active Substance: CLOPIDOGREL BISULFATE
  20. PRILOSEC [Suspect]
     Active Substance: OMEPRAZOLE MAGNESIUM
     Indication: GASTROOESOPHAGEAL REFLUX DISEASE
     Route: 048
     Dates: start: 2007, end: 2013
  21. LOSARTAN. [Concomitant]
     Active Substance: LOSARTAN
     Indication: BLOOD PRESSURE ABNORMAL
     Dates: start: 201202
  22. AMLODIPINE [Concomitant]
     Active Substance: AMLODIPINE BESYLATE
  23. CLOBETASOL [Concomitant]
     Active Substance: CLOBETASOL
  24. NEURONTIN [Concomitant]
     Active Substance: GABAPENTIN
  25. MICARDIS [Concomitant]
     Active Substance: TELMISARTAN
     Indication: BLOOD PRESSURE ABNORMAL
     Dates: start: 201012, end: 201201
  26. MAALOX ANTACID [Concomitant]
     Active Substance: ALUMINUM HYDROXIDE\DIMETHICONE\MAGNESIUM HYDROXIDE
     Dates: start: 2003, end: 2007
  27. CLONIDINE. [Concomitant]
     Active Substance: CLONIDINE
  28. DOXYCYCLINE. [Concomitant]
     Active Substance: DOXYCYCLINE
  29. HYDROXYZINE [Concomitant]
     Active Substance: HYDROXYZINE HYDROCHLORIDE
  30. NIASPAN [Concomitant]
     Active Substance: NIACIN
  31. ENDOCET [Concomitant]
     Active Substance: ACETAMINOPHEN\OXYCODONE HYDROCHLORIDE
  32. ULORIC [Concomitant]
     Active Substance: FEBUXOSTAT
  33. EMLA [Concomitant]
     Active Substance: LIDOCAINE\PRILOCAINE
  34. NEXIUM [Suspect]
     Active Substance: ESOMEPRAZOLE MAGNESIUM
     Indication: GASTROOESOPHAGEAL REFLUX DISEASE
     Route: 048
     Dates: start: 200701, end: 201701
  35. NEXIUM [Suspect]
     Active Substance: ESOMEPRAZOLE MAGNESIUM
     Indication: GASTROOESOPHAGEAL REFLUX DISEASE
     Route: 048
     Dates: start: 2007, end: 2017
  36. PRILOSEC [Suspect]
     Active Substance: OMEPRAZOLE MAGNESIUM
     Indication: GASTROOESOPHAGEAL REFLUX DISEASE
     Dosage: GENERIC
     Route: 065
     Dates: start: 2007, end: 2016
  37. PREVACID [Suspect]
     Active Substance: LANSOPRAZOLE
     Indication: GASTROOESOPHAGEAL REFLUX DISEASE
     Route: 065
  38. MULTIVITAMINS [Concomitant]
     Active Substance: VITAMINS
     Indication: HYPOVITAMINOSIS
     Dates: start: 2008
  39. ACETAMINOPHEN/TYLENOL [Concomitant]
     Indication: PAIN
     Dates: start: 2000
  40. MYLANTA [Concomitant]
     Active Substance: ALUMINUM HYDROXIDE\DIMETHICONE\MAGNESIUM HYDROXIDE
     Dates: start: 2003, end: 2007
  41. PREDNISONE. [Concomitant]
     Active Substance: PREDNISONE
  42. VITAMIN D2 [Concomitant]
     Active Substance: ERGOCALCIFEROL
  43. METFORMIN [Concomitant]
     Active Substance: METFORMIN HYDROCHLORIDE
  44. FOLVITE [Concomitant]
     Active Substance: FOLIC ACID
  45. SENOKOT [Concomitant]
     Active Substance: SENNOSIDES
  46. COUMADIN [Concomitant]
     Active Substance: WARFARIN SODIUM
  47. HYDRALAZINE [Concomitant]
     Active Substance: HYDRALAZINE HYDROCHLORIDE
  48. ACIPHEX [Suspect]
     Active Substance: RABEPRAZOLE SODIUM
     Indication: GASTROOESOPHAGEAL REFLUX DISEASE
     Route: 065
     Dates: start: 2007
  49. ASPIRIN. [Concomitant]
     Active Substance: ASPIRIN
     Indication: ANTICOAGULANT THERAPY
     Dates: start: 2015, end: 2016
  50. ALLOPURINOL. [Concomitant]
     Active Substance: ALLOPURINOL
  51. BYETTA [Concomitant]
     Active Substance: EXENATIDE
  52. HUMULIN NOS [Concomitant]
     Active Substance: INSULIN HUMAN
  53. AZITHROMYCIN ANHYDROUS. [Concomitant]
     Active Substance: AZITHROMYCIN ANHYDROUS
  54. ATORVASTATIN [Concomitant]
     Active Substance: ATORVASTATIN
  55. COLACE [Concomitant]
     Active Substance: DOCUSATE SODIUM
  56. PRILOSEC [Suspect]
     Active Substance: OMEPRAZOLE MAGNESIUM
     Indication: GASTROOESOPHAGEAL REFLUX DISEASE
     Route: 048
     Dates: start: 200701, end: 201701
  57. OMEPRAZOLE?SODIUM BICARBONATE [Suspect]
     Active Substance: OMEPRAZOLE\SODIUM BICARBONATE
     Dosage: GENERIC
     Route: 065
  58. FLUTICASONE. [Concomitant]
     Active Substance: FLUTICASONE
  59. LOSARTAN. [Concomitant]
     Active Substance: LOSARTAN
  60. FOSINOPRIL [Concomitant]
     Active Substance: FOSINOPRIL
  61. HUMALOG [Concomitant]
     Active Substance: INSULIN LISPRO
  62. NEXIUM 24HR [Suspect]
     Active Substance: ESOMEPRAZOLE MAGNESIUM
     Route: 048
  63. TEMAZEPAM. [Concomitant]
     Active Substance: TEMAZEPAM
  64. HYDROCHLOROTHIAZIDE. [Concomitant]
     Active Substance: HYDROCHLOROTHIAZIDE
  65. CEPHALEXIN. [Concomitant]
     Active Substance: CEPHALEXIN
  66. KLOR?CON [Concomitant]
     Active Substance: POTASSIUM CHLORIDE

REACTIONS (5)
  - End stage renal disease [Not Recovered/Not Resolved]
  - Acute kidney injury [Not Recovered/Not Resolved]
  - Chronic kidney disease [Not Recovered/Not Resolved]
  - Nephrogenic anaemia [Unknown]
  - Renal failure [Unknown]

NARRATIVE: CASE EVENT DATE: 20121214
